FAERS Safety Report 7950040-0 (Version None)
Quarter: 2011Q4

REPORT INFORMATION
  Report Type: 
  Country: None (occurrence: None)
  Receive Date: 20111130
  Receipt Date: 20111116
  Transmission Date: 20120403
  Serious: Yes (Death, Other)
  Sender: FDA-Public Use
  Company Number: GB-ROCHE-1009504

PATIENT
  Sex: Female

DRUGS (7)
  1. METOCLOPRAMIDE [Concomitant]
  2. LUCENTIS [Suspect]
     Indication: AGE-RELATED MACULAR DEGENERATION
     Dosage: DOSE: 0.5 MG/L
     Route: 050
     Dates: start: 20100527, end: 20110602
  3. CEFOTAXIME [Concomitant]
  4. LUCENTIS [Suspect]
     Route: 050
     Dates: start: 20110602
  5. CINNARIZINE [Concomitant]
  6. FYBOGEL [Concomitant]
     Dates: start: 20110605
  7. DEXAMETHASONE [Concomitant]
     Dates: start: 20110613, end: 20110617

REACTIONS (5)
  - BLOOD BILIRUBIN ABNORMAL [None]
  - DEATH [None]
  - BLOOD ALKALINE PHOSPHATASE ABNORMAL [None]
  - ALANINE AMINOTRANSFERASE ABNORMAL [None]
  - BREAST CANCER [None]
